FAERS Safety Report 4763844-2 (Version None)
Quarter: 2005Q3

REPORT INFORMATION
  Report Type: 
  Country: None (occurrence: None)
  Receive Date: 20050906
  Receipt Date: 20050825
  Transmission Date: 20060218
  Serious: Yes (Other)
  Sender: FDA-Public Use
  Company Number: 2005120511

PATIENT
  Age: 42 Year
  Sex: Male
  Weight: 111.1313 kg

DRUGS (5)
  1. NEURONTIN [Suspect]
     Indication: NEURALGIA
     Dosage: 3600 MG (1200 MG, 3 IN  1D)
  2. NEURONTIN [Suspect]
     Indication: NEUROPATHY
     Dosage: 3600 MG (1200 MG, 3 IN  1D)
  3. GLUCOTROL [Concomitant]
  4. DARVOCET [Concomitant]
  5. VIAGRA [Concomitant]

REACTIONS (5)
  - AGGRESSION [None]
  - DEPRESSION [None]
  - DRUG WITHDRAWAL SYNDROME [None]
  - FORMICATION [None]
  - TREATMENT NONCOMPLIANCE [None]
